FAERS Safety Report 4530904-0 (Version None)
Quarter: 2004Q4

REPORT INFORMATION
  Report Type: 
  Country: None (occurrence: None)
  Receive Date: 20041206
  Receipt Date: 20040907
  Transmission Date: 20050328
  Serious: No
  Sender: FDA-Public Use
  Company Number: USA040977530

PATIENT
  Age: 45 Year
  Sex: Female
  Weight: 55 kg

DRUGS (2)
  1. CYMBALTA [Suspect]
     Indication: DEPRESSION
     Dates: start: 20040801
  2. ADVIL [Concomitant]

REACTIONS (2)
  - BLOOD ALCOHOL INCREASED [None]
  - RESPIRATORY RATE DECREASED [None]
